FAERS Safety Report 14528918 (Version 1)
Quarter: 2018Q1

REPORT INFORMATION
  Report Type: Spontaneous
  Country: US (occurrence: US)
  Receive Date: 20180213
  Receipt Date: 20180213
  Transmission Date: 20180509
  Serious: Yes (Hospitalization)
  Sender: FDA-Public Use
  Company Number: None

PATIENT
  Age: 61 Year
  Sex: Female

DRUGS (17)
  1. DULERA [Concomitant]
     Active Substance: FORMOTEROL FUMARATE DIHYDRATE\MOMETASONE FUROATE
  2. GARLIC. [Concomitant]
     Active Substance: GARLIC
  3. GABAPENTIN. [Concomitant]
     Active Substance: GABAPENTIN
  4. LETROZOLE. [Concomitant]
     Active Substance: LETROZOLE
  5. ANASTROZOLE. [Concomitant]
     Active Substance: ANASTROZOLE
  6. SYMBICORT [Concomitant]
     Active Substance: BUDESONIDE\FORMOTEROL FUMARATE DIHYDRATE
  7. ALLEGRA [Concomitant]
     Active Substance: FEXOFENADINE HYDROCHLORIDE
  8. IBRANCE [Suspect]
     Active Substance: PALBOCICLIB
     Indication: CHEMOTHERAPY
     Route: 048
     Dates: start: 20170808
  9. CALCIUM [Concomitant]
     Active Substance: CALCIUM
  10. FLONASE [Concomitant]
     Active Substance: FLUTICASONE PROPIONATE
  11. ZANTAC [Concomitant]
     Active Substance: RANITIDINE HYDROCHLORIDE
  12. SINGULAIR [Concomitant]
     Active Substance: MONTELUKAST SODIUM
  13. TRAZODONE [Concomitant]
     Active Substance: TRAZODONE HYDROCHLORIDE
  14. CENTRAL-VITE [Concomitant]
  15. DEXTROMETH [Concomitant]
  16. FLUTICASONE. [Concomitant]
     Active Substance: FLUTICASONE
  17. OXYCODONE [Concomitant]
     Active Substance: OXYCODONE

REACTIONS (4)
  - Pleural effusion [None]
  - Oxygen saturation decreased [None]
  - Ascites [None]
  - Pericardial effusion [None]

NARRATIVE: CASE EVENT DATE: 20180130
